FAERS Safety Report 9789774 (Version 1)
Quarter: 2013Q4

REPORT INFORMATION
  Report Type: Spontaneous
  Country: US (occurrence: US)
  Receive Date: 20131231
  Receipt Date: 20131231
  Transmission Date: 20140711
  Serious: Yes (Other)
  Sender: FDA-Public Use
  Company Number: US-BAYER-2013-159318

PATIENT
  Sex: Female

DRUGS (2)
  1. YAZ [Suspect]
  2. ANCEF [Concomitant]
     Dosage: 1 G, UNK
     Route: 042

REACTIONS (1)
  - Cholelithiasis [None]
